FAERS Safety Report 20924765 (Version 2)
Quarter: 2022Q2

REPORT INFORMATION
  Report Type: Report from Study
  Country: BR (occurrence: BR)
  Receive Date: 20220607
  Receipt Date: 20220621
  Transmission Date: 20220721
  Serious: Yes (Other)
  Sender: FDA-Public Use
  Company Number: BR-NOVARTISPH-NVSC2022BR129176

PATIENT
  Age: 80 Year
  Sex: Female
  Weight: 58 kg

DRUGS (10)
  1. TAFINLAR [Suspect]
     Active Substance: DABRAFENIB MESYLATE
     Indication: Malignant melanoma
     Dosage: 4 DOSAGE FORM, BID
     Route: 048
     Dates: start: 20220303
  2. MEKINIST [Suspect]
     Active Substance: TRAMETINIB DIMETHYL SULFOXIDE
     Indication: Malignant melanoma
     Dosage: 1 DOSAGE FORM, QD
     Route: 048
     Dates: start: 20220303
  3. EXODOS [Concomitant]
     Indication: Anxiety
     Dosage: 1 DOSAGE FORM, QD
     Route: 048
  4. EXODOS [Concomitant]
     Indication: Depression
  5. PURAN [Concomitant]
     Active Substance: LEVOTHYROXINE SODIUM
     Indication: Thyroiditis
     Dosage: 1 DOSAGE FORM, QD
     Route: 048
     Dates: start: 2003
  6. OMEPRAZOLE [Concomitant]
     Active Substance: OMEPRAZOLE
     Indication: Gastric ulcer
     Dosage: 1 DOSAGE FORM, QD
     Route: 048
  7. INDAPAMIDE [Concomitant]
     Active Substance: INDAPAMIDE
     Indication: Hypertension
     Dosage: 1 DOSAGE FORM, QD
     Route: 065
  8. DIGEPLUS [Concomitant]
     Indication: Dyspepsia
     Dosage: 2 DOSAGE FORM, BID
     Route: 055
     Dates: start: 202203
  9. GALEXAN [Concomitant]
     Indication: Surgery
     Dosage: 1 DOSAGE FORM, QD
     Route: 058
     Dates: start: 2022
  10. VITAMIN C [Concomitant]
     Active Substance: ASCORBIC ACID
     Indication: Influenza
     Dosage: 1 DOSAGE FORM, QD
     Route: 048

REACTIONS (7)
  - Femur fracture [Recovered/Resolved]
  - Nephrolithiasis [Recovered/Resolved]
  - Inflammation [Recovered/Resolved]
  - Malaise [Recovered/Resolved]
  - Yellow skin [Recovered/Resolved]
  - Hypersensitivity [Recovered/Resolved]
  - Pruritus [Recovered/Resolved]

NARRATIVE: CASE EVENT DATE: 20220301
